FAERS Safety Report 22302297 (Version 5)
Quarter: 2024Q2

REPORT INFORMATION
  Report Type: Report from Study
  Country: IT (occurrence: IT)
  Receive Date: 20230510
  Receipt Date: 20240601
  Transmission Date: 20240716
  Serious: Yes (Life-Threatening, Other)
  Sender: FDA-Public Use
  Company Number: IT-ABBVIE-4759121

PATIENT
  Age: 79 Year
  Sex: Male
  Weight: 68 kg

DRUGS (12)
  1. UPADACITINIB [Suspect]
     Active Substance: UPADACITINIB
     Indication: Rheumatoid arthritis
     Dosage: FORM STRENGTH-15 MILLIGRAM
     Route: 048
     Dates: start: 20211028, end: 20230411
  2. CORTISONE [Concomitant]
     Active Substance: CORTISONE
     Indication: Rheumatoid arthritis
     Dosage: 4 MILLIGRAM
     Route: 048
     Dates: start: 20070101, end: 20220704
  3. LEVOTHYROXINE SODIUM [Concomitant]
     Active Substance: LEVOTHYROXINE SODIUM
     Indication: Autoimmune thyroiditis
     Dosage: 75 MICROGRAM
     Route: 048
     Dates: start: 20230509
  4. CLOPIDOGREL [Concomitant]
     Active Substance: CLOPIDOGREL BISULFATE
     Indication: Atrial fibrillation
     Dosage: 75 GRAM
     Route: 048
     Dates: start: 20000105
  5. SARS-CoV-2 vaccine [Concomitant]
     Indication: COVID-19 immunisation
     Dosage: STOP DATE TEXT - NOT APPLICABLE
     Dates: start: 20211001
  6. PNEUMOCOCCAL VACCINE POLYVALENT NOS [Concomitant]
     Active Substance: PNEUMOCOCCAL VACCINE POLYVALENT
     Indication: Product used for unknown indication
     Dosage: LAST ADMIN TEXT - NOT APPLICABLE
     Dates: start: 20181001
  7. ALENDRONATE [Concomitant]
     Active Substance: ALENDRONATE SODIUM
     Indication: Osteoporosis
     Dosage: 70 MG
     Route: 048
     Dates: start: 20100722
  8. INFLUENZA VIRUS VACCINE [Concomitant]
     Active Substance: INFLUENZA VIRUS VACCINE
     Indication: Product used for unknown indication
     Dosage: LAST ADMIN DATE: NOT APPLICABLE?SEASONAL
     Dates: start: 20221201
  9. METHYLPREDNISOLONE [Concomitant]
     Active Substance: METHYLPREDNISOLONE
     Indication: Rheumatoid arthritis
     Dosage: 3 MILLIGRAM
     Route: 048
     Dates: start: 20220707, end: 20221212
  10. METHYLPREDNISOLONE [Concomitant]
     Active Substance: METHYLPREDNISOLONE
     Indication: Rheumatoid arthritis
     Dosage: 2 MILLIGRAM
     Route: 048
     Dates: start: 20221212
  11. PANTOPRAZOLE [Concomitant]
     Active Substance: PANTOPRAZOLE
     Indication: Prophylaxis
     Dosage: 40 MG?EVERY OTHER DAY
     Route: 048
     Dates: start: 20170101
  12. FOLIC ACID [Concomitant]
     Active Substance: FOLIC ACID
     Indication: Prophylaxis
     Dosage: 5 MG? EVERY OTHER DAY
     Route: 048
     Dates: start: 20100901

REACTIONS (2)
  - Transient ischaemic attack [Recovered/Resolved]
  - Amnesia [Recovered/Resolved]

NARRATIVE: CASE EVENT DATE: 20230411
